FAERS Safety Report 18223169 (Version 2)
Quarter: 2021Q2

REPORT INFORMATION
  Report Type: Spontaneous
  Country: US (occurrence: US)
  Receive Date: 20200902
  Receipt Date: 20210629
  Transmission Date: 20210717
  Serious: No
  Sender: FDA-Public Use
  Company Number: US-ELI_LILLY_AND_COMPANY-US202009000943

PATIENT
  Sex: Female

DRUGS (3)
  1. HUMULIN N [Suspect]
     Active Substance: INSULIN HUMAN
     Indication: GESTATIONAL DIABETES
     Dosage: 12 U, EACH MORNING
     Route: 065
     Dates: start: 202007
  2. HUMULIN N [Suspect]
     Active Substance: INSULIN HUMAN
     Dosage: 14 U, DAILY, NIGHT
     Route: 065
     Dates: start: 202007
  3. HUMULIN R [Suspect]
     Active Substance: INSULIN HUMAN
     Indication: GESTATIONAL DIABETES
     Dosage: 12 U, BID
     Route: 065
     Dates: start: 202007

REACTIONS (1)
  - Maternal exposure during pregnancy [Unknown]
